FAERS Safety Report 13526455 (Version 1)
Quarter: 2017Q2

REPORT INFORMATION
  Report Type: Spontaneous
  Country: US (occurrence: US)
  Receive Date: 20170509
  Receipt Date: 20170509
  Transmission Date: 20170830
  Serious: Yes (Other)
  Sender: FDA-Public Use
  Company Number: US-BAYER-2017-080218

PATIENT
  Age: 78 Year
  Sex: Female

DRUGS (28)
  1. BAYER LOW DOSE [Suspect]
     Active Substance: ASPIRIN
     Dosage: 81 MG, HS
     Dates: start: 20140729, end: 20141024
  2. LIPITOR [Concomitant]
     Active Substance: ATORVASTATIN CALCIUM
     Dosage: 20 MG, HS
     Dates: start: 20021023
  3. LIPITOR [Concomitant]
     Active Substance: ATORVASTATIN CALCIUM
     Dosage: 40 MG, HS
     Dates: start: 20110817
  4. BIOTIN [Concomitant]
     Active Substance: BIOTIN
     Dosage: 1200 ?G, BID
     Dates: start: 20140512
  5. FISH OIL [Concomitant]
     Active Substance: FISH OIL
     Dosage: 1400 MG, QD
  6. LIPITOR [Concomitant]
     Active Substance: ATORVASTATIN CALCIUM
     Dosage: 10 MG, HS
  7. NUTRIENTS NOS [Concomitant]
     Active Substance: UNSPECIFIED INGREDIENT
     Dosage: 1 DF, QD
  8. LOPRESSOR [Concomitant]
     Active Substance: METOPROLOL TARTRATE
     Dosage: 0.5 DF, BID
     Dates: start: 20140805
  9. RANITIDINE. [Concomitant]
     Active Substance: RANITIDINE
     Dosage: 300 MG, QD
     Dates: start: 20140813
  10. PRILOSEC [Concomitant]
     Active Substance: OMEPRAZOLE MAGNESIUM
     Dosage: 20 MG, QD
     Dates: start: 2009, end: 20140813
  11. LISINOPRIL. [Concomitant]
     Active Substance: LISINOPRIL
     Dosage: 2.5 MG, QD
     Dates: start: 20140918
  12. CELEBREX [Concomitant]
     Active Substance: CELECOXIB
     Dosage: 200 MG, QD
     Dates: start: 20140514, end: 20140804
  13. ORENCIA [Concomitant]
     Active Substance: ABATACEPT
     Dosage: UNK
     Route: 058
     Dates: start: 20140511, end: 20140721
  14. PREDNISONE. [Concomitant]
     Active Substance: PREDNISONE
     Dosage: 5 MG, OM
  15. LEVOTHYROXINE. [Concomitant]
     Active Substance: LEVOTHYROXINE
     Dosage: 50 ?G, UNK
     Dates: end: 20091111
  16. PLAVIX [Concomitant]
     Active Substance: CLOPIDOGREL BISULFATE
     Dosage: 0.5 DF, HS
     Dates: start: 20141031
  17. CRANBERRY. [Concomitant]
     Active Substance: CRANBERRY
     Dosage: 2 DF, BID, PRN
  18. LOPRESSOR [Concomitant]
     Active Substance: METOPROLOL TARTRATE
     Dosage: 0.5 DF, QD
     Dates: start: 20140815, end: 20140917
  19. KEFLEX [Concomitant]
     Active Substance: CEPHALEXIN
     Dosage: 4 MG, 1 HOUR BEFORE ANY DENTAL OR SURGICAL PROCEDURE
  20. HYDROXYCHLOROQUINE [Concomitant]
     Active Substance: HYDROXYCHLOROQUINE
     Dosage: 200 MG, HS
  21. FOLIC ACID. [Concomitant]
     Active Substance: FOLIC ACID
     Dosage: 400 ?G, QD
  22. LEVOTHYROXINE. [Concomitant]
     Active Substance: LEVOTHYROXINE
     Dosage: 75 ?G, QD
     Dates: start: 20071114
  23. VITAMIN E [Concomitant]
     Active Substance: .ALPHA.-TOCOPHEROL
     Dosage: UNK UNK, QD
  24. TYLENOL [Concomitant]
     Active Substance: ACETAMINOPHEN
     Indication: PAIN
     Dosage: 2 DF, PRN
  25. CELEBREX [Concomitant]
     Active Substance: CELECOXIB
     Dosage: 200 MG, BID
     Dates: start: 20080420
  26. LEVOTHYROXINE. [Concomitant]
     Active Substance: LEVOTHYROXINE
     Dosage: 75 ?G, UNK
     Dates: start: 20110825
  27. PLAVIX [Concomitant]
     Active Substance: CLOPIDOGREL BISULFATE
     Dosage: 1 DF, HS
     Dates: start: 20140805
  28. CALCIUM [Concomitant]
     Active Substance: CALCIUM
     Dosage: 1200 MG, QD

REACTIONS (4)
  - Cerebrovascular accident [Unknown]
  - Epistaxis [Unknown]
  - Memory impairment [Unknown]
  - Contusion [None]

NARRATIVE: CASE EVENT DATE: 2014
